FAERS Safety Report 19795801 (Version 1)
Quarter: 2021Q3

REPORT INFORMATION
  Report Type: Spontaneous
  Country: US (occurrence: US)
  Receive Date: 20210904
  Receipt Date: 20210904
  Transmission Date: 20211014
  Serious: Yes (Other)
  Sender: FDA-Public Use
  Company Number: None

PATIENT
  Age: 74 Year
  Sex: Female
  Weight: 67.5 kg

DRUGS (4)
  1. NITROFURANTOIN MOON 100 MG CAPS [Suspect]
     Active Substance: NITROFURANTOIN
     Indication: URINARY TRACT INFECTION
     Dosage: ?          QUANTITY:10 CAPSULE(S);?
     Route: 048
     Dates: start: 20210903, end: 20210904
  2. CALCIUM [Concomitant]
     Active Substance: CALCIUM
  3. VITAMINS [Concomitant]
     Active Substance: VITAMINS
  4. PROGESTERONE. [Concomitant]
     Active Substance: PROGESTERONE

REACTIONS (14)
  - Lethargy [None]
  - Chills [None]
  - Eye pain [None]
  - Hypopnoea [None]
  - Balance disorder [None]
  - Chromaturia [None]
  - Asthenia [None]
  - Decreased appetite [None]
  - Hypersomnia [None]
  - Dizziness [None]
  - Influenza like illness [None]
  - Pyrexia [None]
  - Pain of skin [None]
  - Drug ineffective [None]

NARRATIVE: CASE EVENT DATE: 20210903
